FAERS Safety Report 21696173 (Version 2)
Quarter: 2022Q4

REPORT INFORMATION
  Report Type: Spontaneous
  Country: US (occurrence: US)
  Receive Date: 20221207
  Receipt Date: 20221216
  Transmission Date: 20230113
  Serious: Yes (Other)
  Sender: FDA-Public Use
  Company Number: US-XERIS PHARMACEUTICALS-2022XER00392

PATIENT
  Sex: Female
  Weight: 115.5 kg

DRUGS (6)
  1. RECORLEV [Suspect]
     Active Substance: LEVOKETOCONAZOLE
     Indication: Pituitary-dependent Cushing^s syndrome
     Dosage: 1 TABLET (150 MG), 2X/DAY
     Route: 048
     Dates: start: 2022, end: 2022
  2. RECORLEV [Suspect]
     Active Substance: LEVOKETOCONAZOLE
     Dosage: 1 TABLET (150 MG), 1X/DAY
     Route: 048
     Dates: start: 2022
  3. ASPIRIN [Concomitant]
     Active Substance: ASPIRIN
     Dosage: UNK, 2X/DAY
  4. VITAMIN C [Concomitant]
     Active Substance: ASCORBIC ACID
     Dosage: UNK, 2X/DAY
  5. MEDROXYPROGESTERONE [Concomitant]
     Active Substance: MEDROXYPROGESTERONE
  6. ERGOCALCIFEROL [Concomitant]
     Active Substance: ERGOCALCIFEROL
     Dosage: UNK, 1X/WEEK

REACTIONS (8)
  - Breast abscess [Recovering/Resolving]
  - Vomiting [Recovered/Resolved]
  - Decreased appetite [Recovering/Resolving]
  - Gastrooesophageal reflux disease [Recovered/Resolved]
  - Weight decreased [Not Recovered/Not Resolved]
  - Therapeutic response unexpected [Not Recovered/Not Resolved]
  - Feeling abnormal [Not Recovered/Not Resolved]
  - Insomnia [Recovered/Resolved]

NARRATIVE: CASE EVENT DATE: 20220101
